FAERS Safety Report 8817592 (Version 1)
Quarter: 2012Q4

REPORT INFORMATION
  Report Type: Report from Study
  Country: US (occurrence: US)
  Receive Date: 20121001
  Receipt Date: 20121001
  Transmission Date: 20130627
  Serious: Yes (Hospitalization)
  Sender: FDA-Public Use
  Company Number: US-ABBOTT-12P-163-0986112-00

PATIENT
  Sex: Female
  Weight: 86.26 kg

DRUGS (3)
  1. HUMIRA [Suspect]
     Indication: CROHN^S DISEASE
     Dates: start: 201110
  2. AZATHIOPRINE [Concomitant]
     Indication: CROHN^S DISEASE
  3. VITAMIN B12 [Concomitant]
     Indication: HYPOVITAMINOSIS

REACTIONS (1)
  - Cervical incompetence [Not Recovered/Not Resolved]
